FAERS Safety Report 8806291 (Version 1)
Quarter: 2012Q4

REPORT INFORMATION
  Report Type: Spontaneous
  Country: US (occurrence: None)
  Receive Date: 20120919
  Receipt Date: 20120919
  Transmission Date: 20130627
  Serious: No
  Sender: FDA-Public Use
  Company Number: None

PATIENT
  Sex: Female

DRUGS (2)
  1. CELEBREX [Suspect]
  2. LORAZEPAM [Suspect]

REACTIONS (1)
  - Drug dispensing error [None]
